FAERS Safety Report 8368145-1 (Version None)
Quarter: 2012Q2

REPORT INFORMATION
  Report Type: 
  Country: None (occurrence: None)
  Receive Date: 20120517
  Receipt Date: 20120508
  Transmission Date: 20120825
  Serious: No
  Sender: FDA-Public Use
  Company Number: US-ASTRAZENECA-2012SE29897

PATIENT
  Sex: Male

DRUGS (4)
  1. BENADRYL [Concomitant]
  2. SYMBICORT [Suspect]
     Dosage: 160/4.5, ONE PUFF AT NIGHT
     Route: 055
  3. CLARITIN [Concomitant]
  4. SYMBICORT [Suspect]
     Indication: ASTHMA
     Dosage: 160/4.5, ONE PUFF ONCE A DAY
     Route: 055
     Dates: start: 20100101

REACTIONS (6)
  - NASAL CONGESTION [None]
  - OFF LABEL USE [None]
  - INTENTIONAL DRUG MISUSE [None]
  - NASOPHARYNGITIS [None]
  - COUGH [None]
  - RESPIRATORY DISTRESS [None]
